FAERS Safety Report 8145367-6 (Version None)
Quarter: 2012Q1

REPORT INFORMATION
  Report Type: 
  Country: None (occurrence: None)
  Receive Date: 20120217
  Receipt Date: 20120208
  Transmission Date: 20120608
  Serious: Yes (Other)
  Sender: FDA-Public Use
  Company Number: FR-JNJFOC-20120206170

PATIENT
  Age: 58 Year
  Sex: Male

DRUGS (3)
  1. ZYTIGA [Suspect]
     Route: 048
     Dates: start: 20111202, end: 20111201
  2. ZYTIGA [Suspect]
     Indication: PROSTATE CANCER
     Route: 048
  3. IMMUNOSUPPRESSANT [Concomitant]
     Indication: IMMUNOSUPPRESSANT DRUG THERAPY

REACTIONS (3)
  - TACHYCARDIA [None]
  - CHEST DISCOMFORT [None]
  - INTENTIONAL DRUG MISUSE [None]
